FAERS Safety Report 17294864 (Version 2)
Quarter: 2021Q3

REPORT INFORMATION
  Report Type: Spontaneous
  Country: US (occurrence: US)
  Receive Date: 20200121
  Receipt Date: 20210708
  Transmission Date: 20211014
  Serious: Yes (Life-Threatening, Hospitalization)
  Sender: FDA-Public Use
  Company Number: US-MYLANLABS-2020M1005688

PATIENT
  Age: 21 Year
  Sex: Female

DRUGS (1)
  1. ISOTRETINOIN. [Suspect]
     Active Substance: ISOTRETINOIN
     Indication: PRODUCT USED FOR UNKNOWN INDICATION
     Dosage: 30 MILLIGRAM, BID
     Route: 048

REACTIONS (9)
  - Granulomatosis with polyangiitis [Recovering/Resolving]
  - Anti-neutrophil cytoplasmic antibody positive vasculitis [Recovering/Resolving]
  - Hyperkalaemia [Recovering/Resolving]
  - Interstitial lung disease [Recovering/Resolving]
  - Renal tubular atrophy [Recovering/Resolving]
  - Metabolic acidosis [Unknown]
  - Glomerulosclerosis [Unknown]
  - Pulmonary renal syndrome [Recovering/Resolving]
  - Acute kidney injury [Unknown]
